FAERS Safety Report 4869297-8 (Version None)
Quarter: 2005Q4

REPORT INFORMATION
  Report Type: 
  Country: None (occurrence: None)
  Receive Date: 20051227
  Receipt Date: 20051121
  Transmission Date: 20060501
  Serious: No
  Sender: FDA-Public Use
  Company Number: 2005-134848-NL

PATIENT
  Age: 77 Year
  Sex: Female

DRUGS (7)
  1. MIRTAZAPINE [Suspect]
     Dosage: 15 MG ORAL  QD
     Route: 048
     Dates: start: 20051117, end: 20051120
  2. CARBAZOCHROME [Concomitant]
  3. PARACETAMOL [Concomitant]
  4. SIMVASTATIN [Concomitant]
  5. OMEPRAZOLE [Concomitant]
  6. IBUPROFEN [Concomitant]
  7. GLUCOSAMINE [Concomitant]

REACTIONS (3)
  - BLOOD PRESSURE DECREASED [None]
  - HEART RATE INCREASED [None]
  - MALAISE [None]
